FAERS Safety Report 4356796-0 (Version None)
Quarter: 2004Q2

REPORT INFORMATION
  Report Type: 
  Country: None (occurrence: None)
  Receive Date: 20040507
  Receipt Date: 20040503
  Transmission Date: 20050107
  Serious: Yes (Hospitalization)
  Sender: FDA-Public Use
  Company Number: 200411155GDS

PATIENT
  Age: 33 Year
  Sex: Male

DRUGS (5)
  1. AVELOX [Suspect]
     Indication: FEBRILE INFECTION
     Dosage: 400 MG, TOTAL DAILY, ORAL
     Route: 048
     Dates: end: 20040327
  2. AVELOX [Suspect]
     Indication: PYREXIA
     Dosage: 400 MG, TOTAL DAILY, ORAL
     Route: 048
     Dates: end: 20040327
  3. PARKEMED (MEFENAMIC ACID) [Suspect]
     Dosage: ORAL
     Route: 048
  4. INFLUBENE [Suspect]
     Dosage: ORAL
     Route: 048
  5. CLARITHROMYCIN [Suspect]
     Dosage: ORAL
     Route: 048

REACTIONS (4)
  - DRUG TOXICITY [None]
  - HEPATOCELLULAR DAMAGE [None]
  - HEPATOTOXICITY [None]
  - PERTUSSIS [None]
